FAERS Safety Report 21780119 (Version 2)
Quarter: 2023Q1

REPORT INFORMATION
  Report Type: Spontaneous
  Country: JP (occurrence: JP)
  Receive Date: 20221226
  Receipt Date: 20230226
  Transmission Date: 20230417
  Serious: Yes (Death, Hospitalization, Other)
  Sender: FDA-Public Use
  Company Number: JP-KYOWAKIRIN-2022AKK019648

PATIENT
  Age: 48 Year
  Sex: Female

DRUGS (9)
  1. PEGFILGRASTIM [Suspect]
     Active Substance: PEGFILGRASTIM
     Indication: Colony stimulating factor therapy
     Dosage: 3.6 MILLIGRAM, Q2WK
     Route: 058
     Dates: start: 20180911, end: 20181030
  2. DOXORUBICIN HYDROCHLORIDE [Suspect]
     Active Substance: DOXORUBICIN HYDROCHLORIDE
     Indication: Breast cancer
     Dosage: 96 MILLIGRAM, Q2WK
     Route: 042
     Dates: start: 20180910, end: 20181029
  3. CYCLOPHOSPHAMIDE [Suspect]
     Active Substance: CYCLOPHOSPHAMIDE
     Indication: Breast cancer
     Dosage: 960 MILLIGRAM, Q2WK
     Route: 042
     Dates: start: 20180910, end: 20181029
  4. EMEND [Concomitant]
     Active Substance: APREPITANT
     Indication: Prophylaxis of nausea and vomiting
     Dosage: 80 MILLIGRAM, QD
     Route: 048
     Dates: start: 20180911, end: 20181031
  5. ALOXI [Concomitant]
     Active Substance: PALONOSETRON HYDROCHLORIDE
     Indication: Prophylaxis of nausea and vomiting
     Dosage: 0.75 MILLIGRAM, Q2WK
     Route: 042
     Dates: start: 20180910, end: 20181029
  6. DEXAMETHASONE SODIUM PHOSPHATE [Concomitant]
     Active Substance: DEXAMETHASONE SODIUM PHOSPHATE
     Indication: Prophylaxis of nausea and vomiting
     Dosage: 9.9 MG, 1X/2 WEEKS
     Route: 042
     Dates: start: 20180910, end: 20181029
  7. DEXAMETHASONE SODIUM PHOSPHATE [Concomitant]
     Active Substance: DEXAMETHASONE SODIUM PHOSPHATE
     Dosage: 8 MILLIGRAM, QD
     Route: 048
     Dates: start: 20180911, end: 20181101
  8. AVELOX [Concomitant]
     Active Substance: MOXIFLOXACIN HYDROCHLORIDE
     Indication: Febrile neutropenia
     Dosage: 400 MG, QD
     Route: 048
     Dates: start: 20180921, end: 20181005
  9. AVELOX [Concomitant]
     Active Substance: MOXIFLOXACIN HYDROCHLORIDE
     Dosage: 400 MG, QD
     Route: 048
     Dates: start: 20181113, end: 20181113

REACTIONS (3)
  - Interstitial lung disease [Recovered/Resolved]
  - Lymphangiosis carcinomatosa [Fatal]
  - Drug ineffective [Unknown]

NARRATIVE: CASE EVENT DATE: 20181113
